FAERS Safety Report 12615651 (Version 1)
Quarter: 2016Q3

REPORT INFORMATION
  Report Type: Spontaneous
  Country: US (occurrence: US)
  Receive Date: 20160802
  Receipt Date: 20160802
  Transmission Date: 20161109
  Serious: No
  Sender: FDA-Public Use
  Company Number: US-BAYER-2016-147453

PATIENT
  Age: 53 Year
  Sex: Female

DRUGS (1)
  1. CLIMARA [Suspect]
     Active Substance: ESTRADIOL
     Indication: SLEEP DISORDER
     Route: 062

REACTIONS (4)
  - Drug ineffective for unapproved indication [None]
  - Insomnia [None]
  - Hot flush [None]
  - Off label use [None]
